FAERS Safety Report 7866124-1 (Version None)
Quarter: 2011Q4

REPORT INFORMATION
  Report Type: 
  Country: None (occurrence: None)
  Receive Date: 20111026
  Receipt Date: 20111010
  Transmission Date: 20120403
  Serious: Yes (Hospitalization, Other)
  Sender: FDA-Public Use
  Company Number: 2011AP002365

PATIENT
  Age: 22 Year
  Sex: Female

DRUGS (1)
  1. AMLODIPINE [Suspect]
     Indication: PRODUCT USED FOR UNKNOWN INDICATION
     Dosage: 280 MG;

REACTIONS (10)
  - INTENTIONAL OVERDOSE [None]
  - NON-CARDIOGENIC PULMONARY OEDEMA [None]
  - HYPOXIA [None]
  - ELECTROCARDIOGRAM T WAVE INVERSION [None]
  - CARDIAC MURMUR [None]
  - CARDIAC FAILURE CONGESTIVE [None]
  - HYPOCALCAEMIA [None]
  - PLEURAL EFFUSION [None]
  - HYPOTENSION [None]
  - HEART RATE DECREASED [None]
